FAERS Safety Report 10495942 (Version 1)
Quarter: 2014Q4

REPORT INFORMATION
  Report Type: Spontaneous
  Country: US (occurrence: US)
  Receive Date: 20141003
  Receipt Date: 20141003
  Transmission Date: 20150528
  Serious: Yes (Other)
  Sender: FDA-Public Use
  Company Number: US-BAYER-2014-144270

PATIENT
  Sex: Male

DRUGS (1)
  1. CIPRO [Suspect]
     Active Substance: CIPROFLOXACIN HYDROCHLORIDE
     Indication: HAEMORRHOIDS
     Dosage: UNK
     Route: 048
     Dates: start: 201205

REACTIONS (9)
  - Treatment noncompliance [None]
  - Tachyphrenia [None]
  - Malaise [None]
  - Head discomfort [None]
  - Fear [None]
  - Intracranial pressure increased [None]
  - Affective disorder [None]
  - Hypertension [None]
  - Anxiety [None]
